FAERS Safety Report 17276204 (Version 2)
Quarter: 2020Q2

REPORT INFORMATION
  Report Type: Spontaneous
  Country: US (occurrence: US)
  Receive Date: 20200116
  Receipt Date: 20200528
  Transmission Date: 20200713
  Serious: Yes (Life-Threatening, Hospitalization, Other)
  Sender: FDA-Public Use
  Company Number: US-ASTRAZENECA-2020SE06165

PATIENT
  Age: 706 Day
  Sex: Male
  Weight: 9.2 kg

DRUGS (19)
  1. ALBUTEROL. [Concomitant]
     Active Substance: ALBUTEROL
     Indication: WHEEZING
     Dosage: 2 PUFFS (180 UG) )EVERY 4 HOURS AS NEEDED
     Route: 055
  2. ASPIRIN. [Concomitant]
     Active Substance: ASPIRIN
     Route: 048
  3. REGLAN [Concomitant]
     Active Substance: METOCLOPRAMIDE HYDROCHLORIDE
     Route: 048
  4. POLY-VI-SOL [Concomitant]
     Active Substance: VITAMINS
     Route: 048
  5. NYSTATIN. [Concomitant]
     Active Substance: NYSTATIN
     Dosage: 1 APPLICATION TO AFFECTED AREA TWO TIMES PER DAY
     Route: 061
  6. POTASSIUM CHLORIDE. [Concomitant]
     Active Substance: POTASSIUM CHLORIDE
     Dosage: TAKE 3.3 ML VIA GTUBE TWICE A DAY
     Route: 048
  7. SYNAGIS [Suspect]
     Active Substance: PALIVIZUMAB
     Indication: PREMATURE BABY
     Dosage: 100MG/1ML
     Route: 030
  8. SYNAGIS [Suspect]
     Active Substance: PALIVIZUMAB
     Indication: PREMATURE BABY
     Dosage: 140.0MG UNKNOWN
     Route: 030
     Dates: start: 20191223, end: 20191223
  9. SYNAGIS [Suspect]
     Active Substance: PALIVIZUMAB
     Indication: CHRONIC RESPIRATORY DISEASE
     Dosage: 140.0MG UNKNOWN
     Route: 030
     Dates: start: 20191223, end: 20191223
  10. CALCIUM CARBONATE. [Concomitant]
     Active Substance: CALCIUM CARBONATE
     Dosage: 0.4 ML (100MG) FLUSHED THROUGH THE GASTRIC TUBE THREE TIMES PER DAY
     Route: 065
  11. EPINEPHRINE. [Concomitant]
     Active Substance: EPINEPHRINE
     Dosage: 0.15 MG ONE TIME
     Route: 030
  12. SYNAGIS [Suspect]
     Active Substance: PALIVIZUMAB
     Indication: CHRONIC RESPIRATORY DISEASE
     Dosage: 100MG/1ML
     Route: 030
  13. SPIRONOLACTONE. [Concomitant]
     Active Substance: SPIRONOLACTONE
     Dosage: TAKE 3 ML VIA GTUBE TWICE A DAY
     Route: 048
  14. RANITIDINE. [Concomitant]
     Active Substance: RANITIDINE
     Route: 048
  15. FLUTICASONE. [Concomitant]
     Active Substance: FLUTICASONE
     Dosage: 2 PUFFS INHALATION TWICE DAY
     Route: 055
  16. SYNAGIS [Suspect]
     Active Substance: PALIVIZUMAB
     Indication: FALLOT^S TETRALOGY
     Dosage: 100MG/1ML
     Route: 030
  17. SYNAGIS [Suspect]
     Active Substance: PALIVIZUMAB
     Indication: FALLOT^S TETRALOGY
     Dosage: 140.0MG UNKNOWN
     Route: 030
     Dates: start: 20191223, end: 20191223
  18. LASIX [Concomitant]
     Active Substance: FUROSEMIDE
     Dosage: TAKE 3 ML VIA GTUBE THREE TIMES A DAY
     Route: 048
  19. CENTANY AT KIT [Concomitant]
     Dosage: 1 APPLICATION TO AFFECTED AREA THREE TIMES PER DAY
     Route: 061

REACTIONS (1)
  - Anaphylactic shock [Recovered/Resolved]

NARRATIVE: CASE EVENT DATE: 20191223
